FAERS Safety Report 23478049 (Version 1)
Quarter: 2024Q1

REPORT INFORMATION
  Report Type: Spontaneous
  Country: US (occurrence: US)
  Receive Date: 20240204
  Receipt Date: 20240204
  Transmission Date: 20240409
  Serious: Yes (Other)
  Sender: FDA-Public Use
  Company Number: US-STRIDES ARCOLAB LIMITED-2023SP014751

PATIENT
  Age: 9 Year
  Sex: Male

DRUGS (1)
  1. FLUOXETINE [Suspect]
     Active Substance: FLUOXETINE HYDROCHLORIDE
     Indication: Congenital myasthenic syndrome
     Dosage: UNK
     Route: 065

REACTIONS (2)
  - Therapy non-responder [Unknown]
  - Off label use [Unknown]
